FAERS Safety Report 9232904 (Version 1)
Quarter: 2013Q2

REPORT INFORMATION
  Report Type: Spontaneous
  Country: US (occurrence: None)
  Receive Date: 20130415
  Receipt Date: 20130415
  Transmission Date: 20140414
  Serious: Yes (Hospitalization)
  Sender: FDA-Public Use
  Company Number: None

PATIENT
  Age: 70 Year
  Sex: Female
  Weight: 50.4 kg

DRUGS (2)
  1. DOFETILIDE [Suspect]
     Indication: ATRIAL FIBRILLATION
     Dosage: 1 DOSE 250 MCG, BID PO
     Route: 048
     Dates: start: 20130404, end: 20130404
  2. LEVOFLOXACIN [Suspect]
     Indication: CHRONIC OBSTRUCTIVE PULMONARY DISEASE
     Dosage: 2 DOSES 750 MCG DAILY IV
     Route: 042
     Dates: start: 20130403, end: 20130404

REACTIONS (3)
  - Atrial fibrillation [None]
  - Cardiac failure congestive [None]
  - Torsade de pointes [None]
